FAERS Safety Report 17318891 (Version 2)
Quarter: 2020Q1

REPORT INFORMATION
  Report Type: Spontaneous
  Country: CA (occurrence: CA)
  Receive Date: 20200124
  Receipt Date: 20200218
  Transmission Date: 20200409
  Serious: Yes (Hospitalization)
  Sender: FDA-Public Use
  Company Number: CA-BIOMARINAP-CA-2020-127995

PATIENT
  Age: 15 Year
  Sex: Male
  Weight: 31.3 kg

DRUGS (8)
  1. ADVIL [IBUPROFEN] [Concomitant]
     Active Substance: IBUPROFEN
     Indication: PREMEDICATION
     Dosage: 200 MILLIGRAM, SINGLE
     Route: 048
  2. VOLTARENE (DICLOFENAC SODIUM) [Concomitant]
     Active Substance: DICLOFENAC SODIUM
     Indication: PAIN
     Dosage: UNK
     Route: 061
  3. ADVIL [IBUPROFEN] [Concomitant]
     Active Substance: IBUPROFEN
     Indication: PAIN
  4. TYLENOL [Concomitant]
     Active Substance: ACETAMINOPHEN
     Indication: PAIN
     Dosage: UNK
     Route: 065
  5. LUPRON [Concomitant]
     Active Substance: LEUPROLIDE ACETATE
     Indication: BLOOD GROWTH HORMONE
     Dosage: 7.5 MILLIGRAM
     Route: 030
     Dates: start: 201601
  6. BENADRYL [Concomitant]
     Active Substance: DIPHENHYDRAMINE HYDROCHLORIDE
     Indication: PREMEDICATION
     Dosage: 25 MILLIGRAM, SINGLE
     Route: 048
  7. GRAVOL [Concomitant]
     Active Substance: DIMENHYDRINATE
     Indication: PREMEDICATION
     Dosage: 25 MILLIGRAM, SINGLE
     Route: 048
  8. VIMIZIM [Suspect]
     Active Substance: ELOSULFASE ALFA
     Indication: MUCOPOLYSACCHARIDOSIS IV
     Dosage: 2 MILLIGRAM/KILOGRAM, QW
     Route: 042
     Dates: start: 20160128

REACTIONS (1)
  - Knee operation [Recovering/Resolving]

NARRATIVE: CASE EVENT DATE: 20200108
